FAERS Safety Report 18393586 (Version 1)
Quarter: 2020Q4

REPORT INFORMATION
  Report Type: Spontaneous
  Country: US (occurrence: US)
  Receive Date: 20201016
  Receipt Date: 20201016
  Transmission Date: 20210114
  Serious: Yes (Hospitalization)
  Sender: FDA-Public Use
  Company Number: US-ALVOGEN-2020-ALVOGEN-114925

PATIENT
  Age: 47 Year
  Sex: Female
  Weight: 68 kg

DRUGS (9)
  1. FERROUS SULFATE. [Suspect]
     Active Substance: FERROUS SULFATE
     Indication: MULTIPLE SCLEROSIS
     Dosage: 134 MG (27 MG IRON) PO DAILY
     Route: 048
  2. LORAZEPAM. [Concomitant]
     Active Substance: LORAZEPAM
     Indication: ANXIETY
     Dosage: 1 MG PO TWICE DAILY
  3. NALOXONE [Concomitant]
     Active Substance: NALOXONE
     Indication: SOMNOLENCE
     Dosage: 0.4 MG
     Route: 042
  4. GABAPENTIN. [Suspect]
     Active Substance: GABAPENTIN
     Indication: MULTIPLE SCLEROSIS
     Dosage: 300 MG PO NIGHTLY
     Route: 048
  5. TRAZODONE [Suspect]
     Active Substance: TRAZODONE HYDROCHLORIDE
     Indication: MULTIPLE SCLEROSIS
     Dosage: 150 MG PO NIGHTLY
     Route: 048
  6. AMITRIPTYLINE [Suspect]
     Active Substance: AMITRIPTYLINE
     Indication: MULTIPLE SCLEROSIS
     Dosage: 75 MG BY MOUTH (PO) TWICE DAILY
     Route: 048
  7. ZOLPIDEM [Concomitant]
     Active Substance: ZOLPIDEM TARTRATE
     Indication: SOMNOLENCE
     Dosage: 5 MG PO EVERY NIGHT
  8. OXYBUTYNIN. [Suspect]
     Active Substance: OXYBUTYNIN CHLORIDE
     Indication: MULTIPLE SCLEROSIS
     Dosage: 5 MG PO DAILY
     Route: 048
  9. IBUPROFEN. [Concomitant]
     Active Substance: IBUPROFEN
     Indication: PAIN
     Dosage: 600 MG PO EVERY 6 HOURS AS NEEDED
     Route: 048

REACTIONS (2)
  - Mental status changes [Unknown]
  - Hypoglycaemia [Not Recovered/Not Resolved]
